FAERS Safety Report 24122998 (Version 1)
Quarter: 2024Q3

REPORT INFORMATION
  Report Type: Spontaneous
  Country: NL (occurrence: NL)
  Receive Date: 20240723
  Receipt Date: 20240723
  Transmission Date: 20241016
  Serious: Yes (Other)
  Sender: AUROBINDO
  Company Number: NL-LRB-00976743

PATIENT
  Age: 55 Year
  Sex: Male
  Weight: 108 kg

DRUGS (2)
  1. CITALOPRAM HYDROBROMIDE [Suspect]
     Active Substance: CITALOPRAM HYDROBROMIDE
     Indication: Anxiety
     Dosage: 20 MILLIGRAM, ONCE A DAY
     Route: 065
     Dates: start: 20230421
  2. CITALOPRAM HYDROBROMIDE [Suspect]
     Active Substance: CITALOPRAM HYDROBROMIDE
     Indication: Depression

REACTIONS (4)
  - Tunnel vision [Recovering/Resolving]
  - Amnesia [Recovering/Resolving]
  - Panic reaction [Recovering/Resolving]
  - Weight increased [Recovering/Resolving]
